FAERS Safety Report 7869384-6 (Version None)
Quarter: 2011Q4

REPORT INFORMATION
  Report Type: 
  Country: None (occurrence: None)
  Receive Date: 20111028
  Receipt Date: 20110103
  Transmission Date: 20120403
  Serious: No
  Sender: FDA-Public Use
  Company Number: US-AMGEN-USASP2011000151

PATIENT
  Age: 62 Year
  Sex: Female

DRUGS (7)
  1. SPIRIVA [Concomitant]
  2. ENBREL [Suspect]
     Indication: PRODUCT USED FOR UNKNOWN INDICATION
     Dosage: 50 MG, QWK
     Route: 058
     Dates: start: 20090128, end: 20090909
  3. CLONIDINE [Concomitant]
     Dosage: .1 MG, UNK
  4. PREDNISONE [Concomitant]
     Dosage: 1 MG, UNK
  5. AVALIDE [Concomitant]
  6. TOPROL-XL [Concomitant]
     Dosage: 100 MG, UNK
  7. LEXAPRO [Concomitant]
     Dosage: 10 MG, UNK

REACTIONS (3)
  - OEDEMA PERIPHERAL [None]
  - DRUG HYPERSENSITIVITY [None]
  - ERYTHEMA [None]
